FAERS Safety Report 20948812 (Version 1)
Quarter: 2022Q2

REPORT INFORMATION
  Report Type: Spontaneous
  Country: CA (occurrence: CA)
  Receive Date: 20220612
  Receipt Date: 20220612
  Transmission Date: 20220721
  Serious: Yes (Life-Threatening, Hospitalization, Other)
  Sender: FDA-Public Use
  Company Number: CN-GILEAD-000987362

PATIENT
  Age: 51 Year
  Sex: Female

DRUGS (4)
  1. TRODELVY [Suspect]
     Active Substance: SACITUZUMAB GOVITECAN-HZIY
     Indication: Product used for unknown indication
     Dosage: 1045 MG, Q1WK
     Route: 042
  2. DILTIAZEM [Concomitant]
     Active Substance: DILTIAZEM
  3. ELIQUIS [Concomitant]
     Active Substance: APIXABAN
     Dosage: TABLETS
  4. ESOMEPRAZOLE [Concomitant]
     Active Substance: ESOMEPRAZOLE

REACTIONS (5)
  - Fluid replacement [Recovered/Resolved]
  - Hypotension [Recovered/Resolved]
  - Ileus paralytic [Recovered/Resolved]
  - Neutropenic colitis [Recovered/Resolved]
  - Parenteral nutrition [Recovered/Resolved]
